FAERS Safety Report 10659804 (Version 7)
Quarter: 2015Q1

REPORT INFORMATION
  Report Type: Spontaneous
  Country: US (occurrence: US)
  Receive Date: 20141217
  Receipt Date: 20150327
  Transmission Date: 20150720
  Serious: No
  Sender: FDA-Public Use
  Company Number: US-009507513-1412USA007218

PATIENT
  Age: 16 Year
  Sex: Female

DRUGS (2)
  1. NEXPLANON [Suspect]
     Active Substance: ETONOGESTREL
     Dosage: UNK
     Route: 059
     Dates: start: 20150116, end: 20150116
  2. NEXPLANON [Suspect]
     Active Substance: ETONOGESTREL
     Dosage: UNK
     Route: 059
     Dates: start: 20141212, end: 20141212

REACTIONS (8)
  - Pain [Unknown]
  - Crying [Unknown]
  - Product quality issue [Unknown]
  - Contusion [Unknown]
  - Device difficult to use [Not Recovered/Not Resolved]
  - Wrong technique in drug usage process [Unknown]
  - Device difficult to use [Not Recovered/Not Resolved]
  - Scar [Unknown]

NARRATIVE: CASE EVENT DATE: 20141212
